FAERS Safety Report 19902104 (Version 1)
Quarter: 2021Q3

REPORT INFORMATION
  Report Type: Spontaneous
  Country: US (occurrence: US)
  Receive Date: 20210930
  Receipt Date: 20210930
  Transmission Date: 20211014
  Serious: Yes (Other)
  Sender: FDA-Public Use
  Company Number: US-COLGATE PALMOLIVE COMPANY-20210902041

PATIENT
  Sex: Female

DRUGS (1)
  1. COLGATE OPTIC WHITE RENEWAL LASTING FRESH [Suspect]
     Active Substance: SODIUM MONOFLUOROPHOSPHATE
     Dosage: UNKNOWN DOSE

REACTIONS (5)
  - Tongue disorder [Not Recovered/Not Resolved]
  - Respiration abnormal [Unknown]
  - Anaphylactic reaction [Unknown]
  - Swelling [Unknown]
  - Tongue discomfort [Not Recovered/Not Resolved]
